FAERS Safety Report 9853275 (Version 1)
Quarter: 2014Q1

REPORT INFORMATION
  Report Type: Spontaneous
  Country: US (occurrence: US)
  Receive Date: 20140129
  Receipt Date: 20140129
  Transmission Date: 20141002
  Serious: No
  Sender: FDA-Public Use
  Company Number: US-MALLINCKRODT-T201304604

PATIENT
  Age: 54 Year
  Sex: Male
  Weight: 61.68 kg

DRUGS (2)
  1. DEXTROAMPHETAMINE SULFATE [Suspect]
     Indication: FATIGUE
     Dosage: 10 MG, UNK
     Route: 048
     Dates: start: 201304
  2. SYNTHYROID [Concomitant]
     Indication: PRODUCT USED FOR UNKNOWN INDICATION
     Dosage: UNK

REACTIONS (3)
  - Oropharyngeal pain [Recovered/Resolved]
  - Myalgia [Recovered/Resolved]
  - Headache [Recovered/Resolved]
